FAERS Safety Report 19913858 (Version 1)
Quarter: 2021Q4

REPORT INFORMATION
  Report Type: Spontaneous
  Country: CN (occurrence: CN)
  Receive Date: 20211004
  Receipt Date: 20211004
  Transmission Date: 20220304
  Serious: Yes (Hospitalization)
  Sender: FDA-Public Use
  Company Number: CN-BAXTER-2021BAX024409

PATIENT
  Age: 36 Year
  Sex: Female
  Weight: 47 kg

DRUGS (8)
  1. CYCLOPHOSPHAMIDE [Suspect]
     Active Substance: CYCLOPHOSPHAMIDE
     Indication: Breast cancer female
     Dosage: CYCLOPHOSPHAMIDE INJECTION (0.8G) + 0.9% SODIUM CHLORIDE INJECTION (50ML)
     Route: 041
     Dates: start: 20210617, end: 20210617
  2. CYCLOPHOSPHAMIDE [Suspect]
     Active Substance: CYCLOPHOSPHAMIDE
     Dosage: DOSE RE-INTRODUCED; IV GTT CYCLOPHOSPHAMIDE DILUTED WITH IV GTT 0.9% SODIUM CHLORIDE
     Route: 041
  3. SODIUM CHLORIDE [Suspect]
     Active Substance: SODIUM CHLORIDE
     Indication: Medication dilution
     Dosage: CYCLOPHOSPHAMIDE INJECTION (0.8G) + 0.9% SODIUM CHLORIDE INJECTION (50ML)
     Route: 041
     Dates: start: 20210617, end: 20210617
  4. SODIUM CHLORIDE [Suspect]
     Active Substance: SODIUM CHLORIDE
     Dosage: DOSE RE-INTRODUCED; DILUENT FOR CYCLOPHOSPHAMIDE;
     Route: 041
  5. SODIUM CHLORIDE [Suspect]
     Active Substance: SODIUM CHLORIDE
     Dosage: DOCETAXEL 110MG + 0.9% SODIUM CHLORIDE 250 ML
     Route: 041
     Dates: start: 20210617, end: 20210617
  6. SODIUM CHLORIDE [Suspect]
     Active Substance: SODIUM CHLORIDE
     Dosage: DOSE RE-INTRODUCED; DILUENT FOR DOCETAXEL;
     Route: 041
  7. DOCETAXEL [Suspect]
     Active Substance: DOCETAXEL
     Indication: Breast cancer female
     Dosage: DOCETAXEL 110MG + 0.9% SODIUM CHLORIDE 250 ML
     Route: 041
     Dates: start: 20210617, end: 20210617
  8. DOCETAXEL [Suspect]
     Active Substance: DOCETAXEL
     Dosage: DOSE RE-INTRODUCED;
     Route: 041

REACTIONS (3)
  - Asthenia [Recovered/Resolved]
  - Pyrexia [Recovered/Resolved]
  - White blood cell count decreased [Recovered/Resolved]

NARRATIVE: CASE EVENT DATE: 20210625
